FAERS Safety Report 9258466 (Version 2)
Quarter: 2013Q2

REPORT INFORMATION
  Report Type: Spontaneous
  Country: US (occurrence: US)
  Receive Date: 20130426
  Receipt Date: 20130617
  Transmission Date: 20140414
  Serious: No
  Sender: FDA-Public Use
  Company Number: US-PFIZER INC-2013129553

PATIENT
  Age: 61 Year
  Sex: Female

DRUGS (1)
  1. ADVIL [Suspect]
     Indication: PAIN
     Dosage: 400 MG (200 MG X 2), AS NEEDED

REACTIONS (4)
  - Poor quality drug administered [Unknown]
  - Oral discomfort [Not Recovered/Not Resolved]
  - Glossodynia [Not Recovered/Not Resolved]
  - Capsule physical issue [Not Recovered/Not Resolved]
